FAERS Safety Report 9199272 (Version 1)
Quarter: 2013Q1

REPORT INFORMATION
  Report Type: Spontaneous
  Country: US (occurrence: None)
  Receive Date: 20130325
  Receipt Date: 20130325
  Transmission Date: 20140127
  Serious: Yes (Life-Threatening, Hospitalization)
  Sender: FDA-Public Use
  Company Number: 2013US-004570

PATIENT
  Age: 61 Year
  Sex: Female

DRUGS (12)
  1. OMONTYS (PEGINESATIDE) SOLUTION FOR INJECTION [Suspect]
     Indication: NEPHROGENIC ANAEMIA
     Route: 042
     Dates: start: 20130208, end: 20130208
  2. RENVELA (SEVELAMER CARBONATE) [Concomitant]
  3. HALDOL (HALOPERIDOL) [Concomitant]
  4. DRISDOL (ERGOCALCIFEROL) [Concomitant]
  5. SENSIPAR (CINACALCET HYDROCHLORIDE) [Concomitant]
  6. NEPHROCAPS (ASCORBIC ACID, BIOTIN, CYANOCOBALAMIN, FOLIC ACID, NICOTINAMIDE, PANTOTHENIC ACID, PYRIDOXINE HYDROCHLORIDE, RIBOFLAVIN, THIAMINE HYDROCHLORIDE) [Concomitant]
  7. CLOPIDOGREL (CLOPIDOGREL) [Concomitant]
  8. ALBUTEROL (ALBUTEROL) [Concomitant]
  9. PRILOSEC [Concomitant]
  10. DEPAKOTE (VALPROATE SEMISODIUM) [Concomitant]
  11. ZYPREXA (OLANZAPINE) [Concomitant]
  12. ZEMPLAR (PARICALCITOL) [Concomitant]

REACTIONS (8)
  - Respiratory distress [None]
  - Unresponsive to stimuli [None]
  - Dyspnoea [None]
  - Swelling face [None]
  - Sinus tachycardia [None]
  - Hypotension [None]
  - Anaphylactic reaction [None]
  - Oxygen saturation decreased [None]
